FAERS Safety Report 5332846-X (Version None)
Quarter: 2007Q2

REPORT INFORMATION
  Report Type: 
  Country: None (occurrence: None)
  Receive Date: 20070521
  Receipt Date: 20070514
  Transmission Date: 20071010
  Serious: Yes (Other)
  Sender: FDA-Public Use
  Company Number: 2007SP009317

PATIENT
  Age: 59 Year
  Sex: Female
  Weight: 62 kg

DRUGS (6)
  1. AERIUS (DESLORATADINE ) (DESLORATADINE) [Suspect]
     Indication: DRUG USE FOR UNKNOWN INDICATION
     Dosage: 5 MG;QD;PO
     Route: 048
  2. NOVOLIN GE TORONTO (CON.) [Concomitant]
  3. NOVOLIN GE NPH (CON.) [Concomitant]
  4. LOSARTAN (CON.) [Concomitant]
  5. CRESTOR (CON.) [Concomitant]
  6. NIFEDIPINE (CON.) [Concomitant]

REACTIONS (2)
  - BLOOD GLUCOSE DECREASED [None]
  - THERAPEUTIC RESPONSE UNEXPECTED [None]
